FAERS Safety Report 24833077 (Version 2)
Quarter: 2025Q1

REPORT INFORMATION
  Report Type: Report from Study
  Country: US (occurrence: US)
  Receive Date: 20250111
  Receipt Date: 20250312
  Transmission Date: 20250409
  Serious: No
  Sender: ACADIA PHARMACEUTICALS
  Company Number: US-ACADIA PHARMACEUTICALS INC.-ACA-2025-TRF-000232

PATIENT
  Sex: Female

DRUGS (1)
  1. DAYBUE [Suspect]
     Active Substance: TROFINETIDE
     Indication: Rett syndrome
     Dosage: 20 MILLILITER, BID

REACTIONS (5)
  - Cough [Recovered/Resolved]
  - Insomnia [Recovered/Resolved]
  - Hypophagia [Unknown]
  - Weight decreased [Unknown]
  - Gastroenteritis viral [Recovered/Resolved]
